FAERS Safety Report 8561306-8 (Version None)
Quarter: 2012Q3

REPORT INFORMATION
  Report Type: 
  Country: None (occurrence: None)
  Receive Date: 20120802
  Receipt Date: 20120730
  Transmission Date: 20120928
  Serious: Yes (Life-Threatening, Hospitalization)
  Sender: FDA-Public Use
  Company Number: DE-ELI_LILLY_AND_COMPANY-DE201207009313

PATIENT
  Age: 72 Year

DRUGS (4)
  1. ASPIRIN [Concomitant]
     Dosage: 500 MG, UNK
     Route: 042
  2. CLOPIDOGREL [Concomitant]
     Indication: ANTIPLATELET THERAPY
     Dosage: 600 MG, UNK
  3. PRASUGREL HYDROCHLORIDE [Suspect]
     Indication: ANTIPLATELET THERAPY
     Dosage: 60 MG, SINGLE
  4. HEPARIN [Concomitant]
     Dosage: 5000 IU, SINGLE
     Route: 042

REACTIONS (5)
  - PNEUMONIA [None]
  - SEPTIC SHOCK [None]
  - DEVICE OCCLUSION [None]
  - DRUG INEFFECTIVE [None]
  - RENAL FAILURE [None]
